FAERS Safety Report 8286617-5 (Version None)
Quarter: 2012Q2

REPORT INFORMATION
  Report Type: 
  Country: None (occurrence: None)
  Receive Date: 20120416
  Receipt Date: 20120410
  Transmission Date: 20120825
  Serious: Yes (Other)
  Sender: FDA-Public Use
  Company Number: CA-BAYER-2012-035002

PATIENT
  Age: 41 Year
  Sex: Male

DRUGS (2)
  1. BETASERON [Suspect]
     Indication: PRODUCT USED FOR UNKNOWN INDICATION
     Dosage: .250 MG, UNK
     Dates: start: 20060101, end: 20120201
  2. BETASERON [Suspect]
     Dosage: UNK
     Dates: start: 20120401

REACTIONS (2)
  - GAIT DISTURBANCE [None]
  - MUSCULOSKELETAL STIFFNESS [None]
